FAERS Safety Report 12442065 (Version 1)
Quarter: 2016Q2

REPORT INFORMATION
  Report Type: Spontaneous
  Country: US (occurrence: US)
  Receive Date: 20160607
  Receipt Date: 20160607
  Transmission Date: 20160815
  Serious: No
  Sender: FDA-Public Use
  Company Number: US-BAYER-2016-110064

PATIENT
  Age: 50 Year
  Sex: Female
  Weight: 52.6 kg

DRUGS (6)
  1. LIPITOR [Concomitant]
     Active Substance: ATORVASTATIN CALCIUM
  2. ST.JOSEPH ASPIRIN - FREE FEV.REDU.FOR CHILD. [Concomitant]
  3. MIRALAX [Suspect]
     Active Substance: POLYETHYLENE GLYCOL 3350
     Indication: COLONOSCOPY
     Dosage: UNK
     Route: 048
     Dates: start: 2008
  4. METOPROLOL. [Concomitant]
     Active Substance: METOPROLOL
  5. KRILL OIL [Concomitant]
     Active Substance: DIETARY SUPPLEMENT
  6. CALCIUM [Concomitant]
     Active Substance: CALCIUM

REACTIONS (5)
  - Off label use [None]
  - Circumstance or information capable of leading to medication error [None]
  - Off label use [None]
  - Product use issue [None]
  - Product use issue [None]

NARRATIVE: CASE EVENT DATE: 2008
